FAERS Safety Report 18507636 (Version 1)
Quarter: 2020Q4

REPORT INFORMATION
  Report Type: Spontaneous
  Country: FR (occurrence: FR)
  Receive Date: 20201116
  Receipt Date: 20201116
  Transmission Date: 20210114
  Serious: Yes (Death)
  Sender: FDA-Public Use
  Company Number: FR-PFIZER INC-2020444221

PATIENT
  Age: 63 Year
  Sex: Male

DRUGS (9)
  1. SODIUM BICARBONATE. [Suspect]
     Active Substance: SODIUM BICARBONATE
     Indication: BLOOD ALKALINISATION THERAPY
  2. LEVETIRACETAM. [Suspect]
     Active Substance: LEVETIRACETAM
     Indication: SYMPTOMATIC TREATMENT
     Dosage: UNK
  3. ARGIPRESSIN [Suspect]
     Active Substance: ARGIPRESSIN
     Indication: SYMPTOMATIC TREATMENT
     Dosage: UNK
  4. THIOPENTAL [Concomitant]
     Active Substance: THIOPENTAL
  5. NOREPINEPHRINE BITARTRATE. [Suspect]
     Active Substance: NOREPINEPHRINE BITARTRATE
     Indication: SYMPTOMATIC TREATMENT
     Dosage: UNK
  6. HYDROCORTISONE HEMISUCCINATE [Suspect]
     Active Substance: HYDROCORTISONE HEMISUCCINATE
     Indication: SYMPTOMATIC TREATMENT
  7. ISOPRENALINE [Concomitant]
     Active Substance: ISOPROTERENOL HYDROCHLORIDE
  8. CLONAZEPAM. [Concomitant]
     Active Substance: CLONAZEPAM
  9. MIDAZOLAM. [Concomitant]
     Active Substance: MIDAZOLAM

REACTIONS (1)
  - Drug ineffective [Fatal]
